FAERS Safety Report 9425815 (Version 2)
Quarter: 2013Q3

REPORT INFORMATION
  Report Type: Report from Study
  Country: DE (occurrence: DE)
  Receive Date: 20130729
  Receipt Date: 20130807
  Transmission Date: 20140515
  Serious: Yes (Hospitalization)
  Sender: FDA-Public Use
  Company Number: DE-ABBOTT-13P-062-1124555-00

PATIENT
  Age: 42 Year
  Sex: Female
  Weight: 48 kg

DRUGS (7)
  1. HUMIRA [Suspect]
     Indication: CROHN^S DISEASE
     Route: 058
     Dates: start: 200902, end: 201302
  2. HUMIRA [Suspect]
     Route: 058
     Dates: start: 201307
  3. TRAMADOL [Concomitant]
     Indication: PRODUCT USED FOR UNKNOWN INDICATION
  4. FLUREZEPAN [Concomitant]
     Indication: PRODUCT USED FOR UNKNOWN INDICATION
  5. TALVOSILEN [Concomitant]
     Indication: PRODUCT USED FOR UNKNOWN INDICATION
  6. MIRTAZAPIN [Concomitant]
     Indication: PRODUCT USED FOR UNKNOWN INDICATION
  7. PALADON [Concomitant]
     Indication: PRODUCT USED FOR UNKNOWN INDICATION

REACTIONS (1)
  - Cervical dysplasia [Recovered/Resolved]
